FAERS Safety Report 4434921-0 (Version None)
Quarter: 2004Q3

REPORT INFORMATION
  Report Type: 
  Country: None (occurrence: None)
  Receive Date: 20040726
  Receipt Date: 20040227
  Transmission Date: 20050211
  Serious: No
  Sender: FDA-Public Use
  Company Number: USA040260409

PATIENT
  Age: 66 Year
  Sex: Female

DRUGS (3)
  1. FORTEO [Suspect]
     Indication: BLOOD CALCIUM
     Dosage: 20 UG/L DAY
     Dates: start: 20031217
  2. FORTEO [Suspect]
     Indication: BONE DISORDER
     Dosage: 20 UG/L DAY
     Dates: start: 20031217
  3. FOSAMAX [Concomitant]

REACTIONS (2)
  - INJECTION SITE HAEMORRHAGE [None]
  - INJECTION SITE STINGING [None]
